FAERS Safety Report 10058925 (Version 2)
Quarter: 2014Q2

REPORT INFORMATION
  Report Type: Spontaneous
  Country: US (occurrence: US)
  Receive Date: 20140404
  Receipt Date: 20140425
  Transmission Date: 20141212
  Serious: Yes (Death, Hospitalization)
  Sender: FDA-Public Use
  Company Number: US-BAXTER-2014BAX016066

PATIENT
  Age: 3 Month
  Sex: Female
  Weight: 5 kg

DRUGS (5)
  1. DIANEAL LOW CALCIUM [Suspect]
     Indication: PERITONEAL DIALYSIS
     Route: 033
     Dates: start: 201403
  2. DIANEAL LOW CALCIUM (ULTRABAG) [Suspect]
     Indication: PERITONEAL DIALYSIS
     Route: 033
     Dates: start: 201403
  3. DIANEAL LOW CALCIUM (ULTRABAG) [Suspect]
     Route: 033
     Dates: start: 201403, end: 20140409
  4. DIANEAL LOW CALCIUM (ULTRABAG) [Suspect]
     Indication: PERITONEAL DIALYSIS
     Route: 033
     Dates: start: 201403
  5. DIANEAL LOW CALCIUM (ULTRABAG) [Suspect]
     Route: 033
     Dates: start: 201403

REACTIONS (8)
  - Multimorbidity [Fatal]
  - Upper respiratory tract infection bacterial [Unknown]
  - Staphylococcal infection [Unknown]
  - Post procedural complication [Unknown]
  - Wound secretion [Unknown]
  - Catheter site infection [Unknown]
  - Peritonitis bacterial [Not Recovered/Not Resolved]
  - Fungal peritonitis [Not Recovered/Not Resolved]
